FAERS Safety Report 8506131-9 (Version None)
Quarter: 2012Q3

REPORT INFORMATION
  Report Type: 
  Country: None (occurrence: None)
  Receive Date: 20120712
  Receipt Date: 20120629
  Transmission Date: 20120928
  Serious: Yes (Hospitalization)
  Sender: FDA-Public Use
  Company Number: US-SANOFI-AVENTIS-2012SA046510

PATIENT
  Age: 24 Year
  Sex: Female

DRUGS (1)
  1. CHLOROQUINE PHOSPHATE [Suspect]
     Indication: MALARIA PROPHYLAXIS
     Dosage: TOTAL DOSE WAS 500 MG
     Route: 065

REACTIONS (15)
  - MANIA [None]
  - POST-TRAUMATIC STRESS DISORDER [None]
  - ABNORMAL DREAMS [None]
  - PARANOIA [None]
  - DECREASED APPETITE [None]
  - ABNORMAL BEHAVIOUR [None]
  - INSOMNIA [None]
  - HALLUCINATION, AUDITORY [None]
  - FLASHBACK [None]
  - DELUSION [None]
  - HALLUCINATION [None]
  - HALLUCINATION, VISUAL [None]
  - HALLUCINATION, TACTILE [None]
  - PRESSURE OF SPEECH [None]
  - GENERALISED ANXIETY DISORDER [None]
